FAERS Safety Report 19435186 (Version 2)
Quarter: 2021Q3

REPORT INFORMATION
  Report Type: Spontaneous
  Country: US (occurrence: US)
  Receive Date: 20210617
  Receipt Date: 20210730
  Transmission Date: 20211014
  Serious: No
  Sender: FDA-Public Use
  Company Number: US-ASTRAZENECA-2021A483265

PATIENT
  Sex: Male

DRUGS (2)
  1. BYDUREON BCISE [Suspect]
     Active Substance: EXENATIDE
     Indication: GLUCOSE TOLERANCE IMPAIRED
     Route: 065
  2. BYDUREON BCISE [Suspect]
     Active Substance: EXENATIDE
     Indication: WEIGHT INCREASED
     Route: 065

REACTIONS (8)
  - Pain [Unknown]
  - Device delivery system issue [Unknown]
  - Weight increased [Unknown]
  - Needle issue [Unknown]
  - Product storage error [Unknown]
  - Injection site mass [Unknown]
  - Product dose omission issue [Unknown]
  - Device leakage [Unknown]
